FAERS Safety Report 6311449-4 (Version None)
Quarter: 2009Q3

REPORT INFORMATION
  Report Type: 
  Country: None (occurrence: None)
  Receive Date: 20090817
  Receipt Date: 20090807
  Transmission Date: 20100115
  Serious: Yes (Hospitalization)
  Sender: FDA-Public Use
  Company Number: PHHY2009BR33340

PATIENT
  Age: 5 Year
  Sex: Male

DRUGS (1)
  1. TRILEPTAL [Suspect]
     Indication: MOTOR DYSFUNCTION

REACTIONS (4)
  - ABASIA [None]
  - ENCEPHALITIS [None]
  - MOTOR DYSFUNCTION [None]
  - SURGERY [None]
